FAERS Safety Report 4790561-5 (Version None)
Quarter: 2005Q4

REPORT INFORMATION
  Report Type: 
  Country: None (occurrence: None)
  Receive Date: 20051005
  Receipt Date: 20050919
  Transmission Date: 20060501
  Serious: Yes (Hospitalization)
  Sender: FDA-Public Use
  Company Number: US_0509121408

PATIENT
  Age: 59 Year
  Sex: Male

DRUGS (1)
  1. CIALIS [Suspect]
     Indication: ERECTILE DYSFUNCTION
     Dosage: 10 MG OTHER
     Route: 050

REACTIONS (4)
  - ARTERIOVENOUS MALFORMATION [None]
  - CEREBRAL HAEMORRHAGE [None]
  - HEMIANOPIA HOMONYMOUS [None]
  - NASAL CONGESTION [None]
